FAERS Safety Report 14480293 (Version 3)
Quarter: 2018Q1

REPORT INFORMATION
  Report Type: Report from Study
  Country: BR (occurrence: BR)
  Receive Date: 20180202
  Receipt Date: 20180316
  Transmission Date: 20180509
  Serious: Yes (Other)
  Sender: FDA-Public Use
  Company Number: BR-JNJFOC-20180135140

PATIENT
  Sex: Female
  Weight: 77 kg

DRUGS (8)
  1. SIMPONI [Suspect]
     Active Substance: GOLIMUMAB
     Indication: RHEUMATOID ARTHRITIS
     Route: 058
     Dates: start: 20171103
  2. RENITEC [Concomitant]
     Active Substance: ENALAPRIL MALEATE
     Route: 065
  3. NEUTROFER [Concomitant]
     Active Substance: FERROUS BISGLYCINATE
     Route: 065
  4. SINVALIP [Concomitant]
     Route: 065
  5. GLIMEPIRIDE. [Concomitant]
     Active Substance: GLIMEPIRIDE
     Route: 065
  6. EUTIROX [Concomitant]
     Active Substance: LEVOTHYROXINE SODIUM
     Route: 065
  7. METFORMINE [Concomitant]
     Active Substance: METFORMIN HYDROCHLORIDE
     Route: 065
  8. ISOPHANE INSULIN [Concomitant]
     Active Substance: INSULIN NOS
     Route: 065

REACTIONS (6)
  - Anaemia [Unknown]
  - Adverse drug reaction [Unknown]
  - Chalazion [Recovered/Resolved]
  - Vaginal infection [Unknown]
  - Decreased immune responsiveness [Unknown]
  - Hordeolum [Not Recovered/Not Resolved]

NARRATIVE: CASE EVENT DATE: 2017
